FAERS Safety Report 11439660 (Version 1)
Quarter: 2015Q3

REPORT INFORMATION
  Report Type: Spontaneous
  Country: US (occurrence: US)
  Receive Date: 20150901
  Receipt Date: 20150901
  Transmission Date: 20151125
  Serious: No
  Sender: FDA-Public Use
  Company Number: US-ROCHE-1098596

PATIENT
  Sex: Female

DRUGS (3)
  1. PEGASYS [Suspect]
     Active Substance: PEGINTERFERON ALFA-2A
     Indication: CHRONIC HEPATITIS C
     Dosage: 24 WEEK COURSE
     Route: 058
     Dates: start: 20120314
  2. RIBASPHERE [Suspect]
     Active Substance: RIBAVIRIN
     Indication: CHRONIC HEPATITIS C
     Dosage: 24 WEEK COURSE
     Route: 065
     Dates: start: 20120314
  3. BOCEPREVIR [Suspect]
     Active Substance: BOCEPREVIR
     Indication: CHRONIC HEPATITIS C
     Dosage: 24 WEEK COURSE
     Route: 065
     Dates: start: 20120314

REACTIONS (4)
  - Alopecia [Unknown]
  - Myalgia [Unknown]
  - Headache [Unknown]
  - Rash [Unknown]
